FAERS Safety Report 20503306 (Version 1)
Quarter: 2022Q1

REPORT INFORMATION
  Report Type: Spontaneous
  Country: CN (occurrence: CN)
  Receive Date: 20220222
  Receipt Date: 20220222
  Transmission Date: 20220423
  Serious: Yes (Other)
  Sender: FDA-Public Use
  Company Number: CN-PFIZER INC-202200249186

PATIENT
  Age: 35 Year
  Sex: Female
  Weight: 60 kg

DRUGS (3)
  1. MISOPROSTOL [Suspect]
     Active Substance: MISOPROSTOL
     Indication: Uterine hypotonus
     Dosage: 2 DF
     Route: 060
     Dates: start: 20220209
  2. OXYTOCIN [Suspect]
     Active Substance: OXYTOCIN
     Indication: Uterine hypotonus
     Dosage: 5 IU
     Dates: start: 20220209
  3. OXYTOCIN [Suspect]
     Active Substance: OXYTOCIN
     Dosage: 5 IU
     Route: 041
     Dates: start: 20220209

REACTIONS (5)
  - Cervix haemorrhage uterine [Unknown]
  - Ectropion of cervix [Unknown]
  - Thrombosis [Unknown]
  - Off label use [Unknown]
  - Off label use [Unknown]

NARRATIVE: CASE EVENT DATE: 20220209
